FAERS Safety Report 16624356 (Version 2)
Quarter: 2020Q3

REPORT INFORMATION
  Report Type: Report from Study
  Country: CM (occurrence: CM)
  Receive Date: 20190724
  Receipt Date: 20200707
  Transmission Date: 20201102
  Serious: Yes (Other)
  Sender: FDA-Public Use
  Company Number: CM-SUN PHARMACEUTICAL INDUSTRIES LTD-2019R1-213978

PATIENT
  Age: 58 Year
  Sex: Female

DRUGS (1)
  1. DICLOFENAC [Suspect]
     Active Substance: DICLOFENAC
     Indication: PAIN
     Dosage: UNK
     Route: 030

REACTIONS (2)
  - Peripheral ischaemia [Unknown]
  - Embolia cutis medicamentosa [Unknown]
